FAERS Safety Report 20813962 (Version 1)
Quarter: 2022Q2

REPORT INFORMATION
  Report Type: Spontaneous
  Country: US (occurrence: None)
  Receive Date: 20220510
  Receipt Date: 20220510
  Transmission Date: 20220720
  Serious: Yes (Disabling)
  Sender: FDA-Public Use
  Company Number: None

PATIENT
  Age: 61 Year
  Sex: Male
  Weight: 90 kg

DRUGS (6)
  1. VUITY [Suspect]
     Active Substance: PILOCARPINE HYDROCHLORIDE
     Indication: Presbyopia
     Dosage: OTHER QUANTITY : 1 DROP(S);?FREQUENCY : AS NEEDED;?
     Route: 047
     Dates: start: 20220427, end: 20220428
  2. ATENOLOL [Concomitant]
     Active Substance: ATENOLOL
  3. ATORVASTATIN [Concomitant]
     Active Substance: ATORVASTATIN
  4. NORCO [Concomitant]
     Active Substance: ACETAMINOPHEN\HYDROCODONE BITARTRATE
  5. LORAZEPAM [Concomitant]
     Active Substance: LORAZEPAM
  6. METHOCARBAMOL [Concomitant]
     Active Substance: METHOCARBAMOL

REACTIONS (2)
  - Vitreous floaters [None]
  - Visual impairment [None]

NARRATIVE: CASE EVENT DATE: 20220503
